FAERS Safety Report 14803391 (Version 1)
Quarter: 2018Q2

REPORT INFORMATION
  Report Type: Spontaneous
  Country: US (occurrence: US)
  Receive Date: 20180425
  Receipt Date: 20180425
  Transmission Date: 20180711
  Serious: No
  Sender: FDA-Public Use
  Company Number: US-TEVA-792251ACC

PATIENT
  Sex: Male

DRUGS (1)
  1. SIMVASTATIN. [Suspect]
     Active Substance: SIMVASTATIN
     Dosage: USED SIMVASTATIN 10 MG (NON-DRL) ABOUT 2 YEARS AGO
     Route: 048

REACTIONS (1)
  - Pruritus [Recovered/Resolved]
